FAERS Safety Report 22300103 (Version 4)
Quarter: 2023Q2

REPORT INFORMATION
  Report Type: Other
  Country: QA (occurrence: None)
  Receive Date: 20230509
  Receipt Date: 20230609
  Transmission Date: 20230721
  Serious: No
  Sender: FDA-Public Use
  Company Number: QA-ROCHE-3344673

PATIENT
  Age: 25 Year
  Sex: Male
  Weight: 130 kg

DRUGS (8)
  1. OCRELIZUMAB [Suspect]
     Active Substance: OCRELIZUMAB
     Indication: Relapsing-remitting multiple sclerosis
     Route: 042
     Dates: start: 20210415, end: 20210415
  2. OCRELIZUMAB [Suspect]
     Active Substance: OCRELIZUMAB
     Dosage: TOTAL VOLUME ADMINISTERED: 500 ML
     Route: 042
     Dates: start: 20220522, end: 20220522
  3. OCRELIZUMAB [Suspect]
     Active Substance: OCRELIZUMAB
     Dosage: TOTAL VOLUME ADMINISTERED: 500 ML
     Route: 042
     Dates: start: 20221120, end: 20221120
  4. OCRELIZUMAB [Suspect]
     Active Substance: OCRELIZUMAB
     Dosage: TOTAL VOLUME ADMINISTERED: 500 ML
     Route: 042
     Dates: start: 20211101, end: 20211101
  5. OCRELIZUMAB [Suspect]
     Active Substance: OCRELIZUMAB
     Dosage: TOTAL VOLUME ADMINISTERED: 250 ML
     Route: 042
     Dates: start: 20210429, end: 20210429
  6. OCRELIZUMAB [Suspect]
     Active Substance: OCRELIZUMAB
     Route: 042
     Dates: start: 20230605, end: 20230605
  7. DIPHENHYDRAMINE [Concomitant]
     Active Substance: DIPHENHYDRAMINE
     Route: 042
     Dates: start: 20230605, end: 20230605
  8. METHYLPREDNISOLONE [Concomitant]
     Active Substance: METHYLPREDNISOLONE
     Route: 042
     Dates: start: 20230605, end: 20230605

REACTIONS (1)
  - SARS-CoV-2 test positive [Recovered/Resolved]

NARRATIVE: CASE EVENT DATE: 20230503
